FAERS Safety Report 10641120 (Version 1)
Quarter: 2014Q4

REPORT INFORMATION
  Report Type: Spontaneous
  Country: US (occurrence: None)
  Receive Date: 20141208
  Receipt Date: 20141208
  Transmission Date: 20150529
  Serious: No
  Sender: FDA-Public Use
  Company Number: None

PATIENT
  Age: 11 Year
  Sex: Male

DRUGS (7)
  1. SOD. CHL. NEB [Concomitant]
  2. CYTRA-2 [Concomitant]
     Active Substance: CITRIC ACID MONOHYDRATE\TRISODIUM CITRATE DIHYDRATE
  3. VIMPAT [Concomitant]
     Active Substance: LACOSAMIDE
  4. LEVOCARNITINE. [Concomitant]
     Active Substance: LEVOCARNITINE
  5. TOBRAMYCIN. [Suspect]
     Active Substance: TOBRAMYCIN
     Dosage: 300 MG OR 5 ML  BID  INHALED VIA NEBULIZER
     Dates: start: 20141114
  6. SINGULAIR [Concomitant]
     Active Substance: MONTELUKAST SODIUM
  7. ENALAPRIL [Concomitant]
     Active Substance: ENALAPRIL

REACTIONS (2)
  - Cough [None]
  - Erythema [None]

NARRATIVE: CASE EVENT DATE: 20141114
